FAERS Safety Report 7382156-4 (Version None)
Quarter: 2011Q1

REPORT INFORMATION
  Report Type: 
  Country: None (occurrence: None)
  Receive Date: 20110329
  Receipt Date: 20110323
  Transmission Date: 20110831
  Serious: Yes (Other)
  Sender: FDA-Public Use
  Company Number: US-ABBOTT-11P-163-0714228-00

PATIENT
  Sex: Female

DRUGS (1)
  1. DEPAKOTE [Suspect]
     Indication: DRUG EXPOSURE DURING PREGNANCY
     Route: 064

REACTIONS (10)
  - MULTIPLE INJURIES [None]
  - DRUG EXPOSURE DURING PREGNANCY [None]
  - ANXIETY [None]
  - PAIN [None]
  - DEFORMITY [None]
  - SUPPORTIVE CARE [None]
  - PHYSICAL DISABILITY [None]
  - IMPAIRED WORK ABILITY [None]
  - QUALITY OF LIFE DECREASED [None]
  - EMOTIONAL DISTRESS [None]
